FAERS Safety Report 9457802 (Version 2)
Quarter: 2013Q3

REPORT INFORMATION
  Report Type: Spontaneous
  Country: JP (occurrence: JP)
  Receive Date: 20130814
  Receipt Date: 20130916
  Transmission Date: 20140515
  Serious: Yes (Hospitalization, Other)
  Sender: FDA-Public Use
  Company Number: PHHY2013JP087189

PATIENT
  Age: 56 Year
  Sex: Male

DRUGS (1)
  1. VOLTAREN [Suspect]
     Indication: BACK PAIN
     Dosage: 50 MG, DAILY
     Route: 054
     Dates: start: 20121102, end: 201211

REACTIONS (1)
  - Anaphylactoid shock [Recovered/Resolved]
